FAERS Safety Report 4946456-7 (Version None)
Quarter: 2006Q1

REPORT INFORMATION
  Report Type: 
  Country: None (occurrence: None)
  Receive Date: 20060317
  Receipt Date: 20060307
  Transmission Date: 20060701
  Serious: Yes (Other)
  Sender: FDA-Public Use
  Company Number: US-AVENTIS-200612355GDDC

PATIENT
  Age: 53 Year
  Sex: Male

DRUGS (1)
  1. TRIAMCINOLONE [Suspect]
     Indication: NECK PAIN
     Route: 051

REACTIONS (2)
  - POST PROCEDURAL COMPLICATION [None]
  - SPINAL CORD INFARCTION [None]
